FAERS Safety Report 9006235 (Version 1)
Quarter: 2013Q1

REPORT INFORMATION
  Report Type: Spontaneous
  Country: US (occurrence: US)
  Receive Date: 20130110
  Receipt Date: 20130110
  Transmission Date: 20140127
  Serious: Yes (Other)
  Sender: FDA-Public Use
  Company Number: US-009507513-0907USA03755

PATIENT
  Age: 42 Year
  Sex: Female
  Weight: 67.13 kg

DRUGS (4)
  1. SINGULAIR [Suspect]
     Indication: ASTHMA
     Dosage: 10 MG, HS
     Route: 048
     Dates: start: 20081105, end: 20081107
  2. SINGULAIR [Suspect]
     Indication: MULTIPLE ALLERGIES
  3. ALCOHOL [Suspect]
     Dosage: UNK
     Route: 048
     Dates: start: 20081107
  4. ADVAIR [Suspect]
     Dosage: 250/50, BID

REACTIONS (4)
  - Abnormal behaviour [Unknown]
  - Alcohol use [Unknown]
  - Amnesia [Unknown]
  - Loss of consciousness [Unknown]
